FAERS Safety Report 6817651-7 (Version None)
Quarter: 2010Q3

REPORT INFORMATION
  Report Type: 
  Country: None (occurrence: None)
  Receive Date: 20100706
  Receipt Date: 20100624
  Transmission Date: 20110219
  Serious: Yes (Other)
  Sender: FDA-Public Use
  Company Number: KR-PFIZER INC-2010078560

PATIENT
  Age: 56 Year
  Sex: Female

DRUGS (2)
  1. NEURONTIN [Suspect]
     Indication: PARALYSIS
     Dosage: 400 MG, 2X/DAY
     Route: 048
  2. NEURONTIN [Suspect]
     Dosage: 400 MG, 3X/DAY
     Route: 048

REACTIONS (5)
  - AFFECT LABILITY [None]
  - ASTHENIA [None]
  - DRUG INEFFECTIVE [None]
  - LETHARGY [None]
  - SUICIDE ATTEMPT [None]
